FAERS Safety Report 25961802 (Version 1)
Quarter: 2025Q4

REPORT INFORMATION
  Report Type: Report from Study
  Country: US (occurrence: US)
  Receive Date: 20251027
  Receipt Date: 20251027
  Transmission Date: 20260117
  Serious: Yes (Disabling, Other)
  Sender: GILEAD
  Company Number: US-GILEAD-2025-0734081

PATIENT
  Age: 44 Year
  Sex: Male

DRUGS (1)
  1. BICTEGRAVIR\EMTRICITABINE\TENOFOVIR ALAFENAMIDE [Suspect]
     Active Substance: BICTEGRAVIR\EMTRICITABINE\TENOFOVIR ALAFENAMIDE
     Indication: Product used for unknown indication
     Dosage: 50MG/200MG/25MG
     Route: 065
     Dates: start: 20250908

REACTIONS (1)
  - Cerebrovascular accident [Unknown]
